FAERS Safety Report 21023021 (Version 1)
Quarter: 2022Q2

REPORT INFORMATION
  Report Type: Spontaneous
  Country: US (occurrence: None)
  Receive Date: 20220629
  Receipt Date: 20220629
  Transmission Date: 20220720
  Serious: No
  Sender: FDA-Public Use
  Company Number: None

PATIENT
  Sex: Female

DRUGS (1)
  1. NEXPLANON [Suspect]
     Active Substance: ETONOGESTREL
     Indication: Contraception
     Dosage: 68MG ONCE  SUBDERMALLY?
     Route: 050
     Dates: start: 202102

REACTIONS (2)
  - Abnormal uterine bleeding [None]
  - Device breakage [None]
